FAERS Safety Report 7374348-5 (Version None)
Quarter: 2011Q1

REPORT INFORMATION
  Report Type: 
  Country: None (occurrence: None)
  Receive Date: 20110315
  Receipt Date: 20110301
  Transmission Date: 20110831
  Serious: Yes (Hospitalization)
  Sender: FDA-Public Use
  Company Number: 2011001130

PATIENT
  Age: 69 Year
  Sex: Female

DRUGS (6)
  1. STOGAR [Concomitant]
  2. PANTOSIN (PANTETHINE) [Concomitant]
  3. TARCEVA [Suspect]
     Indication: LUNG ADENOCARCINOMA
     Dosage: 150 MG, QD, ORAL
     Route: 048
     Dates: start: 20101029, end: 20101122
  4. WARFARIN SODIUM [Concomitant]
  5. MAGNESIUM OXIDE (MAGNESIUM OXIDE) [Concomitant]
  6. AMANTADINE HCL [Concomitant]

REACTIONS (5)
  - CHEST X-RAY ABNORMAL [None]
  - LUNG DISORDER [None]
  - EJECTION FRACTION DECREASED [None]
  - OXYGEN SATURATION DECREASED [None]
  - DISCOMFORT [None]
